FAERS Safety Report 7424387-0 (Version None)
Quarter: 2011Q2

REPORT INFORMATION
  Report Type: 
  Country: None (occurrence: None)
  Receive Date: 20110419
  Receipt Date: 20110412
  Transmission Date: 20111010
  Serious: Yes (Hospitalization)
  Sender: FDA-Public Use
  Company Number: FR-PFIZER INC-2011079780

PATIENT
  Age: 3 Year
  Sex: Female

DRUGS (3)
  1. PRIMALAN [Concomitant]
     Dosage: UNK
     Dates: start: 20110217
  2. ACETAMINOPHEN [Concomitant]
     Dosage: UNK
     Dates: start: 20110217
  3. PEDIATRIC ADVIL [Suspect]
     Dosage: UNK
     Dates: start: 20110217, end: 20110217

REACTIONS (1)
  - SUPERINFECTION [None]
